FAERS Safety Report 9402403 (Version 1)
Quarter: 2013Q3

REPORT INFORMATION
  Report Type: Report from Study
  Country: CA (occurrence: CA)
  Receive Date: 20130716
  Receipt Date: 20130716
  Transmission Date: 20140515
  Serious: Yes (Other)
  Sender: FDA-Public Use
  Company Number: CA-UCBSA-091289

PATIENT
  Age: 52 Year
  Sex: Female
  Weight: 61.8 kg

DRUGS (7)
  1. CIMZIA [Suspect]
     Indication: RHEUMATOID ARTHRITIS
     Route: 058
     Dates: start: 20110519
  2. CIMZIA [Suspect]
     Indication: RHEUMATOID ARTHRITIS
     Route: 058
     Dates: start: 20110407, end: 20110505
  3. MULTIVITAMINS [Concomitant]
     Dosage: UNKNOWN DOSE
  4. NAPROXEN [Concomitant]
     Dosage: UNKNOWN DOSE; NO OF INTAKES: PRN
  5. PRIMROSE + FISH OIL [Concomitant]
     Dosage: UNKNOWN DOSE
  6. PRIMROSE + FISH OIL [Concomitant]
     Dosage: UNKNOWN DOSE
  7. VITAMIN D [Concomitant]

REACTIONS (1)
  - Herpes zoster [Recovered/Resolved]
